FAERS Safety Report 4973083-8 (Version None)
Quarter: 2006Q2

REPORT INFORMATION
  Report Type: 
  Country: None (occurrence: None)
  Receive Date: 20060414
  Receipt Date: 20050621
  Transmission Date: 20061013
  Serious: Yes (Hospitalization, Disabling)
  Sender: FDA-Public Use
  Company Number: US-ROCHE-408663

PATIENT
  Age: 18 Year
  Sex: Male
  Weight: 49.9 kg

DRUGS (2)
  1. ACCUTANE [Suspect]
     Route: 048
     Dates: start: 19931217, end: 19940614
  2. MINOCIN [Concomitant]
     Route: 048
     Dates: start: 19931217

REACTIONS (43)
  - ABDOMINAL DISTENSION [None]
  - ABDOMINAL PAIN [None]
  - ABDOMINAL PAIN UPPER [None]
  - ADHESION [None]
  - BLOOD CHOLESTEROL ABNORMAL [None]
  - BLOOD GASTRIN INCREASED [None]
  - BLOOD GLUCOSE INCREASED [None]
  - BLOOD IRON DECREASED [None]
  - BLOOD MAGNESIUM DECREASED [None]
  - CHEST PAIN [None]
  - DRUG EFFECT DECREASED [None]
  - DYSPEPSIA [None]
  - DYSPHAGIA [None]
  - ELECTROCARDIOGRAM ST-T CHANGE [None]
  - ERUCTATION [None]
  - FACIAL BONES FRACTURE [None]
  - FATIGUE [None]
  - FOOD INTOLERANCE [None]
  - GASTROOESOPHAGEAL REFLUX DISEASE [None]
  - GRAND MAL CONVULSION [None]
  - HAEMOGLOBIN DECREASED [None]
  - HAEMORRHOIDS [None]
  - HEADACHE [None]
  - HIATUS HERNIA [None]
  - HYPOAESTHESIA [None]
  - INSOMNIA [None]
  - MASS [None]
  - NASAL SEPTUM DEVIATION [None]
  - NASAL TURBINATE HYPERTROPHY [None]
  - NAUSEA [None]
  - NEUTROPHIL COUNT INCREASED [None]
  - NIGHT SWEATS [None]
  - OESOPHAGEAL ULCER [None]
  - PAIN [None]
  - PNEUMONIA [None]
  - RECTAL HAEMORRHAGE [None]
  - RED BLOOD CELL COUNT DECREASED [None]
  - SINUSITIS [None]
  - STOMATITIS [None]
  - TACHYCARDIA [None]
  - TESTICULAR TORSION [None]
  - TESTIS CANCER [None]
  - VOMITING [None]
